FAERS Safety Report 5420434-6 (Version None)
Quarter: 2007Q3

REPORT INFORMATION
  Report Type: 
  Country: None (occurrence: None)
  Receive Date: 20070816
  Receipt Date: 20070801
  Transmission Date: 20080115
  Serious: Yes (Other)
  Sender: FDA-Public Use
  Company Number: 8025796

PATIENT

DRUGS (2)
  1. KEPPRA [Suspect]
     Indication: CONVULSION
  2. TOPAMAX [Suspect]

REACTIONS (4)
  - CONFUSIONAL STATE [None]
  - DISTURBANCE IN ATTENTION [None]
  - DYSPHASIA [None]
  - MEMORY IMPAIRMENT [None]
